FAERS Safety Report 6575459-4 (Version None)
Quarter: 2010Q1

REPORT INFORMATION
  Report Type: 
  Country: None (occurrence: None)
  Receive Date: 20100208
  Receipt Date: 20100208
  Transmission Date: 20100710
  Serious: Yes (Other)
  Sender: FDA-Public Use
  Company Number: None

PATIENT
  Age: 65 Year
  Sex: Male
  Weight: 65.7716 kg

DRUGS (1)
  1. AMOXICILLIN [Suspect]
     Indication: ANTIBIOTIC PROPHYLAXIS
     Dosage: 4 PER DAY
     Dates: start: 20100129, end: 20100130

REACTIONS (4)
  - BLOOD URINE PRESENT [None]
  - EYE HAEMORRHAGE [None]
  - HAEMORRHAGE [None]
  - SKIN LACERATION [None]
